FAERS Safety Report 8138317-X (Version None)
Quarter: 2012Q1

REPORT INFORMATION
  Report Type: 
  Country: None (occurrence: None)
  Receive Date: 20120215
  Receipt Date: 20111005
  Transmission Date: 20120608
  Serious: No
  Sender: FDA-Public Use
  Company Number: US-SANOFI-AVENTIS-2011SA065886

PATIENT
  Age: 43 Year
  Sex: Female

DRUGS (7)
  1. DIABETA [Suspect]
     Dosage: TAKES TWO TABLETS TWICE DAILY.
     Route: 048
  2. LISINOPRIL [Concomitant]
  3. LANTUS [Concomitant]
     Dosage: DOSE:104 UNIT(S)
     Route: 058
  4. LEVOTHYROXINE SODIUM [Concomitant]
  5. INSULIN DETEMIR [Concomitant]
  6. APIDRA [Concomitant]
     Dosage: DOSE:10 UNIT(S)
     Route: 058
     Dates: start: 20111001
  7. LIPITOR [Concomitant]

REACTIONS (2)
  - SOMNOLENCE [None]
  - BLOOD GLUCOSE INCREASED [None]
